FAERS Safety Report 23507151 (Version 5)
Quarter: 2025Q1

REPORT INFORMATION
  Report Type: Spontaneous
  Country: HR (occurrence: HR)
  Receive Date: 20240209
  Receipt Date: 20250318
  Transmission Date: 20250408
  Serious: Yes (Other)
  Sender: MERCK SHARP & DOHME LLC
  Company Number: None

PATIENT
  Age: 62 Year
  Sex: Male

DRUGS (7)
  1. POSACONAZOLE [Suspect]
     Active Substance: POSACONAZOLE
     Indication: Antifungal prophylaxis
     Dosage: DOSE DESCRIPTION : 300 MILLIGRAM, QD?DAILY DOSE : 300 MILLIGRAM
     Route: 048
     Dates: start: 2023
  2. ESOMEPRAZOLE [Concomitant]
     Active Substance: ESOMEPRAZOLE
  3. ACYCLOVIR [Concomitant]
     Active Substance: ACYCLOVIR
  4. URSODIOL [Concomitant]
     Active Substance: URSODIOL
  5. AZITHROMYCIN [Concomitant]
     Active Substance: AZITHROMYCIN
  6. LETERMOVIR [Concomitant]
     Active Substance: LETERMOVIR
     Dates: start: 2023
  7. SULFAMETHOXAZOLE\TRIMETHOPRIM [Concomitant]
     Active Substance: SULFAMETHOXAZOLE\TRIMETHOPRIM

REACTIONS (1)
  - Primary adrenal insufficiency [Recovering/Resolving]

NARRATIVE: CASE EVENT DATE: 20230724
